FAERS Safety Report 7415412-1 (Version None)
Quarter: 2011Q2

REPORT INFORMATION
  Report Type: 
  Country: None (occurrence: None)
  Receive Date: 20110414
  Receipt Date: 20100608
  Transmission Date: 20111010
  Serious: Yes (Other)
  Sender: FDA-Public Use
  Company Number: D0067914A

PATIENT
  Age: 29 Year
  Sex: Female
  Weight: 69 kg

DRUGS (1)
  1. SEROXAT [Suspect]
     Dosage: 10MG PER DAY
     Route: 048
     Dates: start: 20090101

REACTIONS (3)
  - SINGLE UMBILICAL ARTERY [None]
  - LIVE BIRTH [None]
  - DRUG EXPOSURE DURING PREGNANCY [None]
